FAERS Safety Report 23384371 (Version 1)
Quarter: 2024Q1

REPORT INFORMATION
  Report Type: Spontaneous
  Country: US (occurrence: US)
  Receive Date: 20240109
  Receipt Date: 20240109
  Transmission Date: 20240410
  Serious: No
  Sender: FDA-Public Use
  Company Number: US-PFIZER INC-202400001494

PATIENT
  Age: 66 Year
  Sex: Female
  Weight: 89.81 kg

DRUGS (3)
  1. TESSALON [Suspect]
     Active Substance: BENZONATATE
     Indication: Bronchitis
     Dosage: UNK
  2. TESSALON [Suspect]
     Active Substance: BENZONATATE
     Indication: Influenza
  3. TESSALON [Suspect]
     Active Substance: BENZONATATE
     Indication: Cough

REACTIONS (1)
  - Therapeutic product effect incomplete [Unknown]
